FAERS Safety Report 9740932 (Version 1)
Quarter: 2013Q4

REPORT INFORMATION
  Report Type: Spontaneous
  Country: US (occurrence: US)
  Receive Date: 20131209
  Receipt Date: 20131209
  Transmission Date: 20140711
  Serious: No
  Sender: FDA-Public Use
  Company Number: US-BIOGENIDEC-2013BI099672

PATIENT
  Age: 50 Year
  Sex: Female
  Weight: 83 kg

DRUGS (10)
  1. TECFIDERA [Suspect]
     Indication: PRODUCT USED FOR UNKNOWN INDICATION
     Route: 048
  2. PRIMROSE OIL [Concomitant]
     Route: 048
  3. LISINOPRIL [Concomitant]
     Route: 048
  4. AMBIEN [Concomitant]
     Route: 048
  5. CO Q 10 [Concomitant]
     Route: 048
  6. FISH OIL [Concomitant]
     Route: 048
  7. VITAMIN D3 [Concomitant]
     Route: 048
  8. ASPIRIN LOW [Concomitant]
     Route: 048
  9. VITAMIN B-12 [Concomitant]
     Route: 058
  10. EDECRIN [Concomitant]
     Route: 048

REACTIONS (2)
  - Local swelling [Unknown]
  - Flushing [Unknown]
